FAERS Safety Report 13588556 (Version 3)
Quarter: 2018Q3

REPORT INFORMATION
  Report Type: Report from Study
  Country: None (occurrence: RO)
  Receive Date: 20170529
  Receipt Date: 20180726
  Transmission Date: 20181010
  Serious: Yes (Death, Other)
  Sender: FDA-Public Use
  Company Number: RO-ABBVIE-17K-135-1989602-00

PATIENT
  Age: 78 Year
  Sex: Male

DRUGS (2)
  1. DUODOPA [Suspect]
     Active Substance: CARBIDOPA\LEVODOPA
     Dosage: DM=9.00 DC=6.40 ED=3.50 NRED=0; DMN=3.00 DCN=2.00 EDN=2.00
     Route: 050
     Dates: start: 20160308, end: 20180723
  2. DUODOPA [Suspect]
     Active Substance: CARBIDOPA\LEVODOPA
     Indication: PARKINSON^S DISEASE
     Dosage: DM=8.5;RC=3.6;ED=1.8
     Route: 050
     Dates: start: 20160307

REACTIONS (2)
  - Cardiopulmonary failure [Fatal]
  - Adenocarcinoma gastric [Not Recovered/Not Resolved]

NARRATIVE: CASE EVENT DATE: 20170525
